FAERS Safety Report 5870820-5 (Version None)
Quarter: 2008Q3

REPORT INFORMATION
  Report Type: 
  Country: None (occurrence: None)
  Receive Date: 20080829
  Receipt Date: 20080820
  Transmission Date: 20090109
  Serious: Yes (Hospitalization)
  Sender: FDA-Public Use
  Company Number: 2008SP017028

PATIENT
  Age: 52 Year
  Sex: Female

DRUGS (4)
  1. PEG-INTRON [Suspect]
     Indication: HEPATITIS C
     Dosage: SC
     Route: 058
     Dates: start: 20070901, end: 20071101
  2. PEG-INTRON [Suspect]
     Indication: HEPATITIS C
     Dosage: SC
     Route: 058
     Dates: start: 20080731
  3. RIBAVIRIN [Suspect]
     Indication: HEPATITIS C
     Dosage: PO
     Route: 048
     Dates: start: 20070901, end: 20071101
  4. RIBAVIRIN [Suspect]
     Indication: HEPATITIS C
     Dosage: PO
     Route: 048
     Dates: start: 20080731

REACTIONS (6)
  - ASTHENIA [None]
  - DEHYDRATION [None]
  - DIARRHOEA [None]
  - FULL BLOOD COUNT DECREASED [None]
  - NAUSEA [None]
  - VOMITING [None]
